FAERS Safety Report 6239153-1 (Version None)
Quarter: 2009Q2

REPORT INFORMATION
  Report Type: 
  Country: None (occurrence: None)
  Receive Date: 20090618
  Receipt Date: 20090605
  Transmission Date: 20091009
  Serious: Yes (Hospitalization)
  Sender: FDA-Public Use
  Company Number: 2009AL003720

PATIENT
  Age: 19 Year
  Sex: Female
  Weight: 43 kg

DRUGS (2)
  1. PHENOBARBITAL TAB [Suspect]
     Indication: EPILEPSY
  2. CLARITHROMYCIN [Concomitant]

REACTIONS (12)
  - ABORTION INDUCED [None]
  - BLOOD LACTATE DEHYDROGENASE INCREASED [None]
  - DRUG EXPOSURE DURING PREGNANCY [None]
  - HYPOCHROMIC ANAEMIA [None]
  - LEUKOPENIA [None]
  - PLATELET COUNT INCREASED [None]
  - POST ABORTION INFECTION [None]
  - PYREXIA [None]
  - SJOGREN'S SYNDROME [None]
  - SYSTEMIC LUPUS ERYTHEMATOSUS [None]
  - TOXIC SKIN ERUPTION [None]
  - VIRAL RASH [None]
